FAERS Safety Report 7438894-8 (Version None)
Quarter: 2011Q2

REPORT INFORMATION
  Report Type: 
  Country: None (occurrence: None)
  Receive Date: 20110426
  Receipt Date: 20110412
  Transmission Date: 20111010
  Serious: Yes (Death, Hospitalization)
  Sender: FDA-Public Use
  Company Number: FR-GENENTECH-317017

PATIENT
  Sex: Male

DRUGS (5)
  1. SOLU-MEDROL [Concomitant]
     Indication: PRODUCT USED FOR UNKNOWN INDICATION
     Dosage: UNK
     Dates: start: 20091015, end: 20091015
  2. FLUDARABINE [Suspect]
     Indication: CHRONIC LYMPHOCYTIC LEUKAEMIA
     Dosage: 65 MG, QAM
     Route: 002
     Dates: start: 20091002, end: 20091004
  3. RITUXIMAB [Suspect]
     Indication: CHRONIC LYMPHOCYTIC LEUKAEMIA
     Dosage: 610 MG, QAM
     Route: 041
     Dates: start: 20091001, end: 20091001
  4. CYCLOPHOSPHAMIDE [Suspect]
     Indication: NEOPLASM MALIGNANT
     Dosage: 400 MG, QAM
     Route: 002
     Dates: start: 20091002, end: 20091004
  5. RITUXIMAB [Suspect]
     Dosage: 810 MG, QAM
     Route: 041
     Dates: start: 20091015, end: 20091015

REACTIONS (1)
  - FEBRILE BONE MARROW APLASIA [None]
